FAERS Safety Report 6784310-9 (Version None)
Quarter: 2010Q2

REPORT INFORMATION
  Report Type: 
  Country: None (occurrence: None)
  Receive Date: 20100617
  Receipt Date: 20100608
  Transmission Date: 20101027
  Serious: Yes (Life-Threatening, Hospitalization)
  Sender: FDA-Public Use
  Company Number: 009411

PATIENT
  Age: 75 Year
  Sex: Male
  Weight: 54.3 kg

DRUGS (7)
  1. PLETAL [Suspect]
     Indication: ANGINA PECTORIS
     Dosage: 100 BID, ORAL, 50 MG BID, ORAL
     Route: 048
     Dates: start: 20100402, end: 20100407
  2. PLETAL [Suspect]
     Indication: ANGINA PECTORIS
     Dosage: 100 BID, ORAL, 50 MG BID, ORAL
     Route: 048
     Dates: start: 20100408, end: 20100506
  3. LANSOPRAZOLE [Concomitant]
  4. MUCODYNE DS (CARBOCISTEINE) [Concomitant]
  5. ASPIRIN [Concomitant]
  6. PLAVIX [Concomitant]
  7. SIGMART (NICORANDIL) [Concomitant]

REACTIONS (7)
  - BLOOD PRESSURE DECREASED [None]
  - CARDIAC FAILURE [None]
  - PULMONARY OEDEMA [None]
  - RESPIRATORY FAILURE [None]
  - RESPIRATORY TRACT INFECTION [None]
  - RIB FRACTURE [None]
  - VENTRICULAR FIBRILLATION [None]
